FAERS Safety Report 5281473-1 (Version None)
Quarter: 2007Q1

REPORT INFORMATION
  Report Type: 
  Country: None (occurrence: None)
  Receive Date: 20070323
  Receipt Date: 20070323
  Transmission Date: 20070707
  Serious: Yes (Hospitalization)
  Sender: FDA-Public Use
  Company Number: None

PATIENT
  Age: 78 Year
  Sex: Male
  Weight: 79.8331 kg

DRUGS (1)
  1. OXANDRIN [Suspect]
     Indication: DECREASED APPETITE
     Dosage: 10 MG PO BID
     Route: 048
     Dates: start: 20070125

REACTIONS (8)
  - ANAEMIA [None]
  - BLOOD CREATININE [None]
  - DEHYDRATION [None]
  - HYPERKALAEMIA [None]
  - OEDEMA PERIPHERAL [None]
  - ORAL INTAKE REDUCED [None]
  - RENAL FAILURE [None]
  - URINE OUTPUT DECREASED [None]
